FAERS Safety Report 18542161 (Version 1)
Quarter: 2020Q4

REPORT INFORMATION
  Report Type: Other
  Country: CA (occurrence: CA)
  Receive Date: 20201125
  Receipt Date: 20201125
  Transmission Date: 20210114
  Serious: Yes (Hospitalization, Other)
  Sender: FDA-Public Use
  Company Number: CA-CELLTRION INC.-2020CA032011

PATIENT

DRUGS (15)
  1. METOLAZONE. [Suspect]
     Active Substance: METOLAZONE
     Indication: PULMONARY OEDEMA
     Route: 065
  2. RITUXIMAB (UNKNOWN) [Suspect]
     Active Substance: RITUXIMAB
     Indication: ANTI-NEUTROPHIL CYTOPLASMIC ANTIBODY POSITIVE VASCULITIS
  3. PREDNISONE. [Concomitant]
     Active Substance: PREDNISONE
     Dosage: 6 MILLIGRAM
     Route: 048
  4. INSULIN [Concomitant]
     Active Substance: INSULIN NOS
  5. METOPROLOL. [Concomitant]
     Active Substance: METOPROLOL
     Dosage: 25 MILLIGRAM, 3 EVERY 1 DAY
     Route: 048
  6. SEPTRA [Concomitant]
     Active Substance: SULFAMETHOXAZOLE\TRIMETHOPRIM
  7. LASIX [Suspect]
     Active Substance: FUROSEMIDE
     Indication: PULMONARY OEDEMA
     Dosage: UNK
     Route: 065
  8. LASIX [Suspect]
     Active Substance: FUROSEMIDE
     Indication: FLUID OVERLOAD
  9. HEPARIN [Concomitant]
     Active Substance: HEPARIN SODIUM
     Dosage: 5000 IU (INTERNATIONAL UNIT), 2 EVERY 1 DAY
     Route: 058
  10. POLYETHYLENE GLYCOL 3350. [Concomitant]
     Active Substance: POLYETHYLENE GLYCOL 3350
     Dosage: 17 GRAM, 1 EVERY 1 DAY
     Route: 048
  11. METOLAZONE. [Suspect]
     Active Substance: METOLAZONE
     Indication: FLUID OVERLOAD
  12. CHOLECALCIFEROL [Concomitant]
     Active Substance: CHOLECALCIFEROL
     Dosage: 1000 IU (INTERNATIONAL UNIT), 1 EVERY 1 DAY
     Route: 048
  13. METHYLPREDNISOLONE. [Concomitant]
     Active Substance: METHYLPREDNISOLONE
     Route: 042
  14. SENNA [Concomitant]
     Active Substance: SENNA LEAF\SENNOSIDES\SENNOSIDES A AND B
     Dosage: 17.2 MILLIGRAM
     Route: 048
  15. RITUXIMAB (UNKNOWN) [Suspect]
     Active Substance: RITUXIMAB
     Indication: GRANULOMATOSIS WITH POLYANGIITIS
     Route: 041

REACTIONS (21)
  - Pallor [Recovered/Resolved]
  - Tachypnoea [Recovered/Resolved]
  - Alveolar lung disease [Recovered/Resolved]
  - Blood creatinine increased [Recovered/Resolved]
  - Pulmonary oedema [Recovered/Resolved]
  - Oxygen saturation decreased [Recovered/Resolved]
  - Pulmonary alveolar haemorrhage [Recovered/Resolved]
  - Atrial fibrillation [Recovered/Resolved]
  - Dyspnoea [Recovered/Resolved]
  - Urinary tract infection [Recovered/Resolved]
  - Fluid overload [Recovered/Resolved]
  - Haemoptysis [Recovered/Resolved]
  - Asthenia [Recovered/Resolved]
  - Respiratory failure [Recovered/Resolved]
  - Aspergillus infection [Recovered/Resolved]
  - Hyponatraemia [Recovered/Resolved]
  - Chest discomfort [Recovered/Resolved]
  - Wheezing [Recovered/Resolved]
  - Hypoxia [Recovered/Resolved]
  - Delirium [Recovered/Resolved]
  - Weight decreased [Recovered/Resolved]
